FAERS Safety Report 20779794 (Version 2)
Quarter: 2022Q2

REPORT INFORMATION
  Report Type: Spontaneous
  Country: RU (occurrence: RU)
  Receive Date: 20220503
  Receipt Date: 20220509
  Transmission Date: 20220721
  Serious: Yes (Other)
  Sender: FDA-Public Use
  Company Number: RU-NOVARTISPH-NVSC2022RU098361

PATIENT
  Age: 36 Year
  Sex: Female

DRUGS (10)
  1. DEXAMETHASONE [Suspect]
     Active Substance: DEXAMETHASONE
     Indication: Follicular lymphoma stage IV
     Dosage: UNK, TWO DEXA-BEAM TREATMENT COURSES
     Route: 065
     Dates: start: 20120316, end: 20120412
  2. DEXAMETHASONE [Suspect]
     Active Substance: DEXAMETHASONE
     Dosage: UNK, HIGH-DOSE BEAM CHEMOTHERAPY
     Route: 065
     Dates: start: 20120601, end: 20120606
  3. ETOPOSIDE [Suspect]
     Active Substance: ETOPOSIDE
     Indication: Follicular lymphoma stage IV
     Dosage: UNK, TWO DEXA-BEAM TREATMENT COURSES
     Route: 065
     Dates: start: 20120316, end: 20120412
  4. ETOPOSIDE [Suspect]
     Active Substance: ETOPOSIDE
     Dosage: UNK,  HIGH-DOSE BEAM CHEMOTHERAPY
     Route: 065
     Dates: start: 20120601, end: 20120606
  5. CYTARABINE [Suspect]
     Active Substance: CYTARABINE
     Indication: Follicular lymphoma stage IV
     Dosage: UNK, TWO DEXA-BEAM TREATMENT COURSES
     Route: 065
     Dates: start: 20120316, end: 20120412
  6. CYTARABINE [Suspect]
     Active Substance: CYTARABINE
     Dosage: UNK, HIGH DOSE BEAM CHEMOTHERAPY
     Route: 065
     Dates: start: 20120601, end: 20120606
  7. CARMUSTINE [Suspect]
     Active Substance: CARMUSTINE
     Indication: Follicular lymphoma stage IV
     Dosage: UNK, TWO DEXA-BEAM TREATMENT COURSES
     Route: 065
     Dates: start: 20120316, end: 20120412
  8. CARMUSTINE [Suspect]
     Active Substance: CARMUSTINE
     Dosage: UNK, HIGH DOSE BEAM CHEMOTHERAPY
     Route: 065
     Dates: start: 20120601, end: 20120606
  9. MELPHALAN [Suspect]
     Active Substance: MELPHALAN
     Indication: Follicular lymphoma stage IV
     Dosage: UNK,TWO DEXA-BEAM TREATMENT COURSES
     Route: 065
     Dates: start: 20120316, end: 20120412
  10. MELPHALAN [Suspect]
     Active Substance: MELPHALAN
     Dosage: UNK, HIGH DOSE BEAM CHEMOTHERAPY
     Route: 065
     Dates: start: 20120601, end: 20120606

REACTIONS (13)
  - Febrile neutropenia [Unknown]
  - Thrombocytopenia [Unknown]
  - Hepatotoxicity [Unknown]
  - Pneumonia [Unknown]
  - Agranulocytosis [Unknown]
  - Haemorrhage [Unknown]
  - Hepatitis toxic [Unknown]
  - Follicular lymphoma stage IV [Unknown]
  - Malignant neoplasm progression [Unknown]
  - Anaemia [Unknown]
  - Mucosal inflammation [Unknown]
  - Therapy partial responder [Unknown]
  - Product use in unapproved indication [Unknown]
